FAERS Safety Report 12502104 (Version 1)
Quarter: 2016Q2

REPORT INFORMATION
  Report Type: Spontaneous
  Country: GB (occurrence: GB)
  Receive Date: 20160627
  Receipt Date: 20160627
  Transmission Date: 20160815
  Serious: Yes (Other)
  Sender: FDA-Public Use
  Company Number: GB-TEVA-669377ACC

PATIENT
  Age: 40 Year
  Sex: Female
  Weight: 80.28 kg

DRUGS (7)
  1. MIRTAZAPINE. [Suspect]
     Active Substance: MIRTAZAPINE
     Dosage: 15 MILLIGRAM DAILY;
     Dates: start: 20160509, end: 20160528
  2. AVAMYS [Concomitant]
     Active Substance: FLUTICASONE FUROATE
  3. MIRTAZAPINE. [Suspect]
     Active Substance: MIRTAZAPINE
     Dosage: 30 MILLIGRAM DAILY;
     Dates: start: 20160528, end: 20160606
  4. NAPROXEN. [Concomitant]
     Active Substance: NAPROXEN
  5. SERTRALINE [Concomitant]
     Active Substance: SERTRALINE HYDROCHLORIDE
  6. MIRTAZAPINE. [Suspect]
     Active Substance: MIRTAZAPINE
     Indication: ANXIETY
     Dosage: 15 MILLIGRAM DAILY;
     Dates: start: 20160606, end: 20160607
  7. DESUNIN [Concomitant]
     Active Substance: CHOLECALCIFEROL

REACTIONS (9)
  - Aggression [Not Recovered/Not Resolved]
  - Peripheral swelling [Unknown]
  - Abnormal weight gain [Unknown]
  - Bruxism [Not Recovered/Not Resolved]
  - Increased appetite [Unknown]
  - Anxiety [Not Recovered/Not Resolved]
  - Anger [Unknown]
  - Sleep disorder [Not Recovered/Not Resolved]
  - Irritability [Recovering/Resolving]

NARRATIVE: CASE EVENT DATE: 20160528
